FAERS Safety Report 14024000 (Version 3)
Quarter: 2017Q4

REPORT INFORMATION
  Report Type: Spontaneous
  Country: FR (occurrence: FR)
  Receive Date: 20170929
  Receipt Date: 20171123
  Transmission Date: 20180321
  Serious: Yes (Other)
  Sender: FDA-Public Use
  Company Number: FR-MERCK KGAA-2028224

PATIENT
  Age: 65 Year
  Sex: Female

DRUGS (6)
  1. TEMESTA (LORAZEPAM) [Concomitant]
     Active Substance: LORAZEPAM
  2. LEXOMIL [Concomitant]
     Active Substance: BROMAZEPAM
  3. NOVOTHYROX [Suspect]
     Active Substance: LEVOTHYROXINE SODIUM
     Indication: PRODUCT USED FOR UNKNOWN INDICATION
     Dates: start: 201706
  4. SPASFON [Concomitant]
     Active Substance: PHLOROGLUCINOL\1,3,5-TRIMETHOXYBENZENE
  5. EVISTA [Concomitant]
     Active Substance: RALOXIFENE HYDROCHLORIDE
  6. CHIBRO-CADRON [Concomitant]
     Active Substance: DEXAMETHASONE\NEOMYCIN SULFATE

REACTIONS (8)
  - Visual impairment [None]
  - Fatigue [Recovered/Resolved]
  - Cardiac disorder [None]
  - Eye haemorrhage [Recovered/Resolved]
  - Hot flush [None]
  - Headache [None]
  - Ocular hyperaemia [None]
  - Hyperhidrosis [None]

NARRATIVE: CASE EVENT DATE: 2017
